FAERS Safety Report 24603088 (Version 2)
Quarter: 2025Q3

REPORT INFORMATION
  Report Type: Spontaneous
  Country: EU (occurrence: EU)
  Receive Date: 20241111
  Receipt Date: 20250803
  Transmission Date: 20251021
  Serious: Yes (Death, Other)
  Sender: ALEXION PHARMACEUTICALS
  Company Number: None

PATIENT
  Age: 68 Year
  Sex: Female
  Weight: 87 kg

DRUGS (2)
  1. IMFINZI [Suspect]
     Active Substance: DURVALUMAB
     Dates: start: 20240524, end: 20241016
  2. PREDNISOLONE [Concomitant]
     Active Substance: PREDNISOLONE
     Dosage: 7 TABLETS/DAY FOR 4 DAYS, THEN TAPER.
     Dates: start: 20240830, end: 20240925

REACTIONS (5)
  - Thrombosis [Recovering/Resolving]
  - Myocarditis [Fatal]
  - Pneumonitis [Fatal]
  - Pancreatitis [Recovered/Resolved]
  - Pneumocystis jirovecii pneumonia [Fatal]

NARRATIVE: CASE EVENT DATE: 20240813
